FAERS Safety Report 7773003-7 (Version None)
Quarter: 2011Q3

REPORT INFORMATION
  Report Type: 
  Country: None (occurrence: None)
  Receive Date: 20110922
  Receipt Date: 20110311
  Transmission Date: 20111222
  Serious: No
  Sender: FDA-Public Use
  Company Number: US-ASTRAZENECA-2011SE10690

PATIENT
  Age: 43 Year
  Sex: Female
  Weight: 79.4 kg

DRUGS (5)
  1. METHADONE HCL [Concomitant]
  2. SEROQUEL XR [Suspect]
     Indication: BIPOLAR DISORDER
     Route: 048
     Dates: start: 20100101
  3. INSULIN [Concomitant]
  4. XANAX [Concomitant]
  5. SEROQUEL XR [Suspect]
     Indication: INSOMNIA
     Route: 048
     Dates: start: 20100101

REACTIONS (8)
  - HYPERTENSION [None]
  - INSOMNIA [None]
  - MICROALBUMINURIA [None]
  - FATIGUE [None]
  - VERTIGO [None]
  - EAR PAIN [None]
  - SLEEP DISORDER [None]
  - DRUG DOSE OMISSION [None]
